FAERS Safety Report 24236817 (Version 3)
Quarter: 2024Q3

REPORT INFORMATION
  Report Type: Spontaneous
  Country: JP (occurrence: JP)
  Receive Date: 20240822
  Receipt Date: 20240904
  Transmission Date: 20241017
  Serious: Yes (Other)
  Sender: SANOFI AVENTIS
  Company Number: None

PATIENT
  Age: 66 Year
  Sex: Female

DRUGS (8)
  1. DOCETAXEL [Suspect]
     Active Substance: DOCETAXEL\DOCETAXEL ANHYDROUS
     Indication: Lung carcinoma cell type unspecified recurrent
     Dosage: UNK, ON DAY 81
     Route: 065
  2. RAMUCIRUMAB [Concomitant]
     Active Substance: RAMUCIRUMAB
     Indication: Lung carcinoma cell type unspecified recurrent
     Dosage: UNK, ON DAY 81
     Route: 065
  3. BISOPROLOL [Concomitant]
     Active Substance: BISOPROLOL\BISOPROLOL FUMARATE
     Indication: Stress cardiomyopathy
     Dosage: 0.625 MG, QD
     Route: 065
  4. BISOPROLOL [Concomitant]
     Active Substance: BISOPROLOL\BISOPROLOL FUMARATE
     Dosage: 3.125 MG, QD
     Route: 065
  5. PERINDOPRIL [Concomitant]
     Active Substance: PERINDOPRIL
     Indication: Stress cardiomyopathy
     Dosage: 2 MG, QD
     Route: 065
  6. PERINDOPRIL [Concomitant]
     Active Substance: PERINDOPRIL
     Dosage: 4 MG, QD
     Route: 065
  7. SPIRONOLACTONE [Concomitant]
     Active Substance: SPIRONOLACTONE
     Indication: Stress cardiomyopathy
     Dosage: 12.5 MG, QD
     Route: 065
  8. FUROSEMIDE [Concomitant]
     Active Substance: FUROSEMIDE
     Indication: Stress cardiomyopathy
     Dosage: 20 MG
     Route: 042

REACTIONS (5)
  - Stress cardiomyopathy [Recovered/Resolved]
  - Disease recurrence [Recovered/Resolved]
  - Orthopnoea [Recovered/Resolved]
  - Oedema peripheral [Recovered/Resolved]
  - Ventricular hypokinesia [Recovered/Resolved]
